FAERS Safety Report 14869351 (Version 2)
Quarter: 2018Q2

REPORT INFORMATION
  Report Type: Spontaneous
  Country: AT (occurrence: AT)
  Receive Date: 20180509
  Receipt Date: 20180622
  Transmission Date: 20180711
  Serious: Yes (Other)
  Sender: FDA-Public Use
  Company Number: AT-ACCORD-066818

PATIENT
  Age: 45 Year
  Sex: Female
  Weight: 60 kg

DRUGS (1)
  1. OLMESARTAN/OLMESARTAN MEDOXOMIL [Suspect]
     Active Substance: OLMESARTAN
     Indication: HYPERTENSION
     Dates: start: 20170927, end: 20171121

REACTIONS (1)
  - Hepatitis acute [Unknown]

NARRATIVE: CASE EVENT DATE: 20171107
